FAERS Safety Report 19289224 (Version 1)
Quarter: 2021Q2

REPORT INFORMATION
  Report Type: Spontaneous
  Country: SI (occurrence: SI)
  Receive Date: 20210521
  Receipt Date: 20210521
  Transmission Date: 20210717
  Serious: Yes (Death, Other)
  Sender: FDA-Public Use
  Company Number: SI-JNJFOC-20210522158

PATIENT
  Age: 68 Year
  Sex: Male

DRUGS (2)
  1. ERDAFITINIB. [Suspect]
     Active Substance: ERDAFITINIB
     Indication: TRANSITIONAL CELL CARCINOMA
     Route: 065
     Dates: start: 202009
  2. ERDAFITINIB. [Suspect]
     Active Substance: ERDAFITINIB
     Route: 065

REACTIONS (4)
  - Transitional cell carcinoma [Unknown]
  - Death [Fatal]
  - Dry mouth [Recovering/Resolving]
  - Stomatitis [Recovering/Resolving]
